FAERS Safety Report 9767008 (Version 1)
Quarter: 2013Q4

REPORT INFORMATION
  Report Type: Spontaneous
  Country: US (occurrence: US)
  Receive Date: 20131217
  Receipt Date: 20131217
  Transmission Date: 20140711
  Serious: No
  Sender: FDA-Public Use
  Company Number: US-GLAXOSMITHKLINE-A1036827A

PATIENT
  Age: 74 Year
  Sex: Male

DRUGS (2)
  1. VOTRIENT [Suspect]
     Indication: SARCOMA
     Dosage: 200MG UNKNOWN
     Route: 048
     Dates: start: 201307
  2. CARDIRENE [Concomitant]

REACTIONS (3)
  - Cough [Unknown]
  - Pain [Unknown]
  - Asthenia [Unknown]
